FAERS Safety Report 4452477-3 (Version None)
Quarter: 2004Q3

REPORT INFORMATION
  Report Type: 
  Country: None (occurrence: None)
  Receive Date: 20040916
  Receipt Date: 20040908
  Transmission Date: 20050211
  Serious: Yes (Hospitalization)
  Sender: FDA-Public Use
  Company Number: K200401370

PATIENT
  Age: 76 Year
  Sex: Male

DRUGS (4)
  1. ALTACE [Suspect]
     Dosage: 2.5MG, QD, ORAL
     Route: 048
  2. TIMOPTOL (TIMOLOL MALEATE) EYE DROPS, 0.25% [Suspect]
  3. KARDEGIC (ACETYLSALICYLIC LYSINE) POWDER (EXCEPT [DPO]), 160MG [Suspect]
     Dosage: 160 MG, QD, ORAL
     Route: 048
  4. LESCOL [Suspect]
     Dosage: 20 MG, QD, ORAL
     Route: 048
     Dates: start: 20040615, end: 20040618

REACTIONS (1)
  - PNEUMONITIS [None]
